FAERS Safety Report 4328366-1 (Version None)
Quarter: 2004Q1

REPORT INFORMATION
  Report Type: 
  Country: None (occurrence: None)
  Receive Date: 20040324
  Receipt Date: 20030321
  Transmission Date: 20041129
  Serious: No
  Sender: FDA-Public Use
  Company Number: 10028374-C548073-1

PATIENT
  Sex: Female

DRUGS (2)
  1. 2B1654 - 20 MEQ POT CHL IN 5% DEX + .45% SOD HL INJ, USP [Suspect]
     Dosage: INTRAVENOUS
     Route: 042
     Dates: start: 20030321
  2. UNKNOWN STEROIDS [Concomitant]

REACTIONS (2)
  - BLOOD GLUCOSE INCREASED [None]
  - MEDICATION ERROR [None]
